FAERS Safety Report 23729723 (Version 1)
Quarter: 2024Q2

REPORT INFORMATION
  Report Type: Report from Study
  Country: US (occurrence: US)
  Receive Date: 20240411
  Receipt Date: 20240411
  Transmission Date: 20240715
  Serious: Yes (Other)
  Sender: FDA-Public Use
  Company Number: US-ABBVIE-5712699

PATIENT
  Sex: Male

DRUGS (2)
  1. VENCLEXTA [Suspect]
     Active Substance: VENETOCLAX
     Indication: Acute myeloid leukaemia
     Dosage: DAY 1?100 MG STRENGTH?TAKE 1 TABLET BY MOUTH ON DAY 1 TABLETS BY MOUTH ONCE DAILY WITH FOOD AND A...
     Route: 048
  2. VENCLEXTA [Suspect]
     Active Substance: VENETOCLAX
     Indication: Acute myeloid leukaemia
     Dosage: 100 MG STRENGTH TAKE 2 TABLETS BY MOUTH ONCE DAILY WITH FOOD AND A ?FULL GLASS OFWATER .
     Route: 048
     Dates: start: 2024

REACTIONS (1)
  - Recurrent cancer [Unknown]
